FAERS Safety Report 6114295-X (Version None)
Quarter: 2009Q1

REPORT INFORMATION
  Report Type: 
  Country: None (occurrence: None)
  Receive Date: 20090312
  Receipt Date: 20081201
  Transmission Date: 20090719
  Serious: No
  Sender: FDA-Public Use
  Company Number: US-ABBOTT-08P-163-0490637-00

PATIENT
  Sex: Male
  Weight: 113.5 kg

DRUGS (3)
  1. DEPAKOTE [Suspect]
     Indication: AUTISM
     Route: 048
     Dates: start: 19980101, end: 20081108
  2. DEPAKOTE [Suspect]
     Indication: AUTISM
     Route: 048
     Dates: start: 20081108
  3. RISPERDAL [Concomitant]
     Indication: AUTISM
     Route: 048

REACTIONS (3)
  - ABNORMAL BEHAVIOUR [None]
  - FEELING ABNORMAL [None]
  - SPEECH DISORDER [None]
